FAERS Safety Report 9976679 (Version 1)
Quarter: 2014Q1

REPORT INFORMATION
  Report Type: Report from Study
  Country: US (occurrence: US)
  Receive Date: 20140306
  Receipt Date: 20140306
  Transmission Date: 20141002
  Serious: No
  Sender: FDA-Public Use
  Company Number: US-ABBVIE-13P-163-1167572-00

PATIENT
  Age: 37 Year
  Sex: Female

DRUGS (8)
  1. HUMIRA [Suspect]
     Indication: COLITIS ULCERATIVE
     Dates: start: 20130907, end: 20130907
  2. HUMIRA [Suspect]
     Dates: start: 20130921, end: 20130921
  3. HUMIRA [Suspect]
     Dates: start: 20131005
  4. IMURAN [Concomitant]
     Indication: COLITIS ULCERATIVE
     Route: 048
  5. SULFAZALAZINE [Concomitant]
     Indication: COLITIS ULCERATIVE
     Route: 048
  6. PREDNISONE [Concomitant]
     Indication: COLITIS ULCERATIVE
     Dosage: TAPERING DOSE
  7. ESTROSTEP [Concomitant]
     Indication: HORMONE REPLACEMENT THERAPY
     Route: 048
  8. EFFEXOR [Concomitant]
     Indication: DEPRESSION
     Route: 048

REACTIONS (6)
  - Pain [Not Recovered/Not Resolved]
  - Sick relative [Not Recovered/Not Resolved]
  - Pyrexia [Unknown]
  - Abdominal pain [Not Recovered/Not Resolved]
  - Headache [Recovering/Resolving]
  - Arthralgia [Not Recovered/Not Resolved]
